FAERS Safety Report 9121969 (Version 1)
Quarter: 2013Q1

REPORT INFORMATION
  Report Type: Spontaneous
  Country: FR (occurrence: FR)
  Receive Date: 20130114
  Receipt Date: 20130114
  Transmission Date: 20140127
  Serious: Yes (Life-Threatening, Other)
  Sender: FDA-Public Use
  Company Number: FR-ASTRAZENECA-2013SE02378

PATIENT
  Age: 58 Year
  Sex: Male

DRUGS (6)
  1. INEXIUM [Suspect]
     Route: 048
     Dates: start: 20120810, end: 20120815
  2. TOPALGIC [Suspect]
     Route: 048
     Dates: start: 20120810, end: 20120815
  3. CEFTRIAXONE [Suspect]
     Route: 042
     Dates: start: 20120810, end: 20120813
  4. CIPROFLOXACINE [Suspect]
     Route: 048
     Dates: start: 20120810, end: 20120815
  5. AUGMENTIN [Concomitant]
     Dates: start: 20120810, end: 20120810
  6. FORTUM [Concomitant]
     Dates: start: 20120813, end: 20120815

REACTIONS (2)
  - Lung disorder [Recovered/Resolved]
  - Hypersensitivity [Recovered/Resolved]
